FAERS Safety Report 9825279 (Version 1)
Quarter: 2014Q1

REPORT INFORMATION
  Report Type: Report from Study
  Country: CA (occurrence: CA)
  Receive Date: 20140117
  Receipt Date: 20140117
  Transmission Date: 20141002
  Serious: Yes (Death)
  Sender: FDA-Public Use
  Company Number: CA-ROCHE-1334993

PATIENT
  Sex: Female

DRUGS (5)
  1. AVASTIN [Suspect]
     Indication: GLIOMA
     Route: 042
     Dates: start: 20130722, end: 20130923
  2. DEXAMETHASONE [Concomitant]
     Route: 065
  3. L-CARNITINE [Concomitant]
  4. BENFOTIAMINE [Concomitant]
     Route: 065
  5. VALPROIC ACID [Concomitant]

REACTIONS (1)
  - Death [Fatal]
